FAERS Safety Report 7891786 (Version 6)
Quarter: 2015Q3

REPORT INFORMATION
  Report Type: Report from Study
  Country: CA (occurrence: CA)
  Receive Date: 20110408
  Receipt Date: 20150908
  Transmission Date: 20151125
  Serious: Yes (Hospitalization, Other)
  Sender: FDA-Public Use
  Company Number: PHHY2011CA25382

PATIENT
  Age: 77 Year
  Sex: Male

DRUGS (1)
  1. SANDOSTATIN LAR DEPOT [Suspect]
     Active Substance: OCTREOTIDE ACETATE
     Indication: ACROMEGALY
     Dosage: 40 MG, QMO
     Route: 030
     Dates: start: 20071212

REACTIONS (11)
  - Cholelithiasis [Unknown]
  - Bile duct stone [Unknown]
  - Back pain [Unknown]
  - Biliary colic [Unknown]
  - Sleep disorder [Unknown]
  - Pain [Unknown]
  - Loss of consciousness [Unknown]
  - Muscle spasms [Unknown]
  - Abdominal pain [Unknown]
  - Syncope [Unknown]
  - Fatigue [Unknown]

NARRATIVE: CASE EVENT DATE: 20130903
